FAERS Safety Report 5211668-4 (Version None)
Quarter: 2007Q1

REPORT INFORMATION
  Report Type: 
  Country: None (occurrence: None)
  Receive Date: 20070117
  Receipt Date: 20070117
  Transmission Date: 20070707
  Serious: Yes (Other)
  Sender: FDA-Public Use
  Company Number: None

PATIENT
  Age: 54 Year
  Sex: Female
  Weight: 68.0396 kg

DRUGS (7)
  1. CRESTOR [Suspect]
     Indication: BLOOD CHOLESTEROL INCREASED
     Dosage: 1/DAY AT BEDTIME BUCCAL
     Route: 002
     Dates: start: 20040101
  2. ETODOLAC [Concomitant]
  3. FEMHRT [Concomitant]
  4. VITAMIN E [Concomitant]
  5. CALCIUM W/VITAMIN D [Concomitant]
  6. . [Concomitant]
  7. GENERAL VITAMIN SUPPLEMENT [Concomitant]

REACTIONS (4)
  - FALL [None]
  - INSOMNIA [None]
  - LOSS OF CONSCIOUSNESS [None]
  - TREMOR [None]
